FAERS Safety Report 20572388 (Version 7)
Quarter: 2024Q1

REPORT INFORMATION
  Report Type: Spontaneous
  Country: US (occurrence: US)
  Receive Date: 20220309
  Receipt Date: 20240219
  Transmission Date: 20240410
  Serious: Yes (Hospitalization, Disabling, Other)
  Sender: FDA-Public Use
  Company Number: US-ORGANON-O2203USA000788

PATIENT
  Sex: Male

DRUGS (8)
  1. SINGULAIR [Suspect]
     Active Substance: MONTELUKAST SODIUM
     Dosage: 10 MILLIGRAM
     Route: 048
     Dates: start: 1998, end: 2012
  2. SINGULAIR [Suspect]
     Active Substance: MONTELUKAST SODIUM
     Dosage: 10 MILLIGRAM
     Route: 048
     Dates: end: 2022
  3. SINGULAIR [Suspect]
     Active Substance: MONTELUKAST SODIUM
     Dosage: 1 TAB BY MOUTH DAILY
     Route: 048
  4. SINGULAIR [Suspect]
     Active Substance: MONTELUKAST SODIUM
     Dosage: 10 MILLIGRAM (NIGHTLY)
     Route: 048
     Dates: start: 20200121
  5. SINGULAIR [Suspect]
     Active Substance: MONTELUKAST SODIUM
     Dosage: 10 MILLIGRAM (NIGHTLY)
     Route: 048
     Dates: start: 20200122
  6. SINGULAIR [Suspect]
     Active Substance: MONTELUKAST SODIUM
     Dosage: TAKE 1 TABLET (10 MG TOTAL) (NIGHTLY)
     Route: 048
     Dates: start: 20200124, end: 20200223
  7. SINGULAIR [Suspect]
     Active Substance: MONTELUKAST SODIUM
     Dosage: UNK
     Route: 048
  8. FLONASE [Concomitant]
     Active Substance: FLUTICASONE PROPIONATE
     Dosage: UNK
     Dates: start: 20200117

REACTIONS (11)
  - Neuropsychological symptoms [Not Recovered/Not Resolved]
  - Depression [Recovering/Resolving]
  - Suicidal ideation [Not Recovered/Not Resolved]
  - Respiratory failure [Recovered/Resolved]
  - Pulmonary embolism [Recovered/Resolved]
  - Gastrooesophageal reflux disease [Recovered/Resolved]
  - Depression [Recovered/Resolved]
  - Hypertension [Recovered/Resolved]
  - Hypercholesterolaemia [Recovered/Resolved]
  - Asthma [Recovered/Resolved]
  - Insomnia [Unknown]

NARRATIVE: CASE EVENT DATE: 20060101
